FAERS Safety Report 25198550 (Version 1)
Quarter: 2025Q2

REPORT INFORMATION
  Report Type: Spontaneous
  Country: US (occurrence: None)
  Receive Date: 20250414
  Receipt Date: 20250414
  Transmission Date: 20250716
  Serious: Yes (Other)
  Sender: FDA-CTU
  Company Number: None

PATIENT
  Age: 55 Year
  Sex: Female
  Weight: 106.59 kg

DRUGS (2)
  1. DULOXETINE [Suspect]
     Active Substance: DULOXETINE
     Indication: Myofascial spasm
     Dosage: FREQUENCY : TWICE A DAY;?
     Dates: start: 20250210, end: 20250217
  2. PAROXETINE [Suspect]
     Active Substance: PAROXETINE

REACTIONS (3)
  - Abnormal dreams [None]
  - Somnolence [None]
  - Product substitution issue [None]

NARRATIVE: CASE EVENT DATE: 20250217
